FAERS Safety Report 8244315-8 (Version None)
Quarter: 2012Q1

REPORT INFORMATION
  Report Type: 
  Country: None (occurrence: None)
  Receive Date: 20120329
  Receipt Date: 20120327
  Transmission Date: 20120608
  Serious: No
  Sender: FDA-Public Use
  Company Number: US-PFIZER INC-2012032296

PATIENT
  Sex: Female

DRUGS (5)
  1. LISINOPRIL [Suspect]
     Indication: HYPERTENSION
     Dosage: UNK
     Route: 048
     Dates: end: 20110923
  2. LIPITOR [Suspect]
     Indication: BLOOD CHOLESTEROL INCREASED
     Dosage: 20 MG, 1X/DAY
     Route: 048
     Dates: start: 20110101, end: 20110901
  3. LIPITOR [Suspect]
     Indication: HYPERLIPIDAEMIA
  4. AMLODIPINE BESYLATE [Suspect]
     Indication: HYPERTENSION
     Dosage: 5 MG, 2X/DAY
     Route: 048
     Dates: end: 20110101
  5. AMLODIPINE BESYLATE [Suspect]
     Dosage: UNK
     Dates: start: 20120127, end: 20120205

REACTIONS (1)
  - URTICARIA [None]
